FAERS Safety Report 21024299 (Version 1)
Quarter: 2022Q2

REPORT INFORMATION
  Report Type: Spontaneous
  Country: PT (occurrence: PT)
  Receive Date: 20220629
  Receipt Date: 20220629
  Transmission Date: 20220721
  Serious: Yes (Life-Threatening, Hospitalization, Other)
  Sender: FDA-Public Use
  Company Number: PT-009507513-2206PRT008257

PATIENT
  Age: 39 Year
  Sex: Female

DRUGS (2)
  1. RALTEGRAVIR POTASSIUM [Suspect]
     Active Substance: RALTEGRAVIR POTASSIUM
     Dosage: TWICE A DAY
     Route: 048
  2. RALTEGRAVIR POTASSIUM [Suspect]
     Active Substance: RALTEGRAVIR POTASSIUM
     Dosage: 1200 MG A DAY
     Route: 048

REACTIONS (9)
  - Sepsis [Unknown]
  - Cardiac dysfunction [Unknown]
  - Renal impairment [Unknown]
  - Respiratory disorder [Unknown]
  - Hepatic function abnormal [Unknown]
  - Blood disorder [Unknown]
  - Abortion spontaneous [Unknown]
  - Depressed mood [Unknown]
  - Exposure during pregnancy [Unknown]

NARRATIVE: CASE EVENT DATE: 20190101
